FAERS Safety Report 6307366-6 (Version None)
Quarter: 2009Q3

REPORT INFORMATION
  Report Type: 
  Country: None (occurrence: None)
  Receive Date: 20090807
  Receipt Date: 20090102
  Transmission Date: 20100115
  Serious: Yes (Other)
  Sender: FDA-Public Use
  Company Number: US-JNJFOC-2009100458

PATIENT
  Age: 10 Month
  Sex: Female

DRUGS (3)
  1. IBUPROFEN [Suspect]
     Indication: MALAISE
     Dosage: 1 DOSE(S), 1 IN 6 HOUR, ORAL
     Route: 048
     Dates: start: 20081230
  2. IBUPROFEN [Suspect]
     Indication: PYREXIA
     Dosage: 1 DOSE(S), 1 IN 6 HOUR, ORAL
     Route: 048
     Dates: start: 20081230
  3. CEFDINIR (CEFDINIR) ORAL SUSPENSION [Concomitant]

REACTIONS (2)
  - DIARRHOEA [None]
  - FAECES DISCOLOURED [None]
